FAERS Safety Report 7577764-1 (Version None)
Quarter: 2011Q2

REPORT INFORMATION
  Report Type: 
  Country: None (occurrence: None)
  Receive Date: 20110621
  Receipt Date: 20110610
  Transmission Date: 20111010
  Serious: Yes (Other)
  Sender: FDA-Public Use
  Company Number: 2010JP004944

PATIENT
  Age: 43 Year
  Sex: Male
  Weight: 59.2 kg

DRUGS (19)
  1. BUFFERIN [Concomitant]
  2. PL GRAN (CAFFEINE, PARACETAMOL, PROMETHAZINE METHYLENE DISALICYLATE, S [Concomitant]
  3. FAMOTIDINE [Concomitant]
  4. GLUFAST (MITIGLINIDE CALCIUM) [Concomitant]
  5. KETOPROFEN [Concomitant]
  6. EMPYNASE P (PRONASE) [Concomitant]
  7. CHOLEBINE (COLESTILAN) [Concomitant]
  8. AMARYL [Concomitant]
  9. ZESULAN (MEQUITAZINE) [Concomitant]
  10. FASTIC (NATEGLINIDE) [Concomitant]
  11. ASVERIN (TIPEPIDINE HIBENZATE) [Concomitant]
  12. P-MDPA [Concomitant]
  13. ZETIA [Concomitant]
  14. TACROLIMUS [Suspect]
     Indication: LUPUS NEPHRITIS
     Dosage: 3 MG, /D, ORAL; 1.5 MG, /D, ORAL
     Route: 048
     Dates: start: 20081029, end: 20090909
  15. PARIET (RABEPRAZOLE SODIU) [Concomitant]
  16. NITROPEN (GLYCERYL TRINITRATE) [Concomitant]
  17. PREDONINE (PREDNISOLONE) PER ORAL NOS [Suspect]
     Indication: LUPUS NEPHRITIS
     Dosage: 17.5 MG, /D, ORAL; 15MG, /D, ORAL
     Route: 048
     Dates: end: 20090106
  18. PRAVASTATIN [Concomitant]
  19. GLUCOBAY [Concomitant]

REACTIONS (7)
  - HALLUCINATION, AUDITORY [None]
  - DELUSION [None]
  - DIABETES MELLITUS [None]
  - UPPER RESPIRATORY TRACT INFLAMMATION [None]
  - NASOPHARYNGITIS [None]
  - INFLUENZA [None]
  - CONDITION AGGRAVATED [None]
